FAERS Safety Report 23505476 (Version 1)
Quarter: 2024Q1

REPORT INFORMATION
  Report Type: Spontaneous
  Country: US (occurrence: US)
  Receive Date: 20240209
  Receipt Date: 20240209
  Transmission Date: 20240410
  Serious: No
  Sender: FDA-Public Use
  Company Number: US-EYEPOINT PHARMACEUTICALS, INC.-US-EYP-23-00307

PATIENT
  Age: 32 Year
  Sex: Male

DRUGS (2)
  1. YUTIQ [Suspect]
     Active Substance: FLUOCINOLONE ACETONIDE
     Indication: Uveitis
     Dosage: 0.18 MILLIGRAM, SINGLE, BOTH EYES/OU
     Route: 031
     Dates: start: 20230901, end: 20230901
  2. YUTIQ [Suspect]
     Active Substance: FLUOCINOLONE ACETONIDE

REACTIONS (4)
  - Drug delivery system issue [Unknown]
  - Needle issue [Unknown]
  - Product dose omission issue [Unknown]
  - No adverse event [Unknown]

NARRATIVE: CASE EVENT DATE: 20230901
